FAERS Safety Report 8542633-7 (Version None)
Quarter: 2012Q3

REPORT INFORMATION
  Report Type: 
  Country: None (occurrence: None)
  Receive Date: 20120727
  Receipt Date: 20120724
  Transmission Date: 20120928
  Serious: Yes (Other)
  Sender: FDA-Public Use
  Company Number: JP-AMGEN-JPNSP2012040793

PATIENT
  Age: 59 Year
  Sex: Female
  Weight: 60 kg

DRUGS (2)
  1. RANMARK [Suspect]
     Indication: METASTASES TO BONE
     Dosage: 120 MG, QID
     Route: 058
     Dates: start: 20120531, end: 20120531
  2. ZOMETA [Suspect]
     Indication: METASTASES TO BONE
     Dosage: 40 MG, QID
     Route: 042
     Dates: end: 20120510

REACTIONS (1)
  - OSTEONECROSIS OF JAW [None]
